FAERS Safety Report 21191406 (Version 8)
Quarter: 2025Q1

REPORT INFORMATION
  Report Type: Spontaneous
  Country: US (occurrence: US)
  Receive Date: 20220809
  Receipt Date: 20250113
  Transmission Date: 20250408
  Serious: No
  Sender: PFIZER
  Company Number: US-PFIZER INC-202201045876

PATIENT
  Age: 80 Year
  Sex: Female

DRUGS (5)
  1. IBRANCE [Suspect]
     Active Substance: PALBOCICLIB
     Indication: Breast cancer metastatic
     Route: 048
     Dates: start: 202203
  2. IBRANCE [Suspect]
     Active Substance: PALBOCICLIB
     Route: 048
     Dates: start: 20220407
  3. IBRANCE [Suspect]
     Active Substance: PALBOCICLIB
     Route: 048
     Dates: start: 202302
  4. LETROZOLE [Concomitant]
     Active Substance: LETROZOLE
  5. ANASTROZOLE [Concomitant]
     Active Substance: ANASTROZOLE
     Dates: start: 202203

REACTIONS (3)
  - White blood cell count decreased [Not Recovered/Not Resolved]
  - Immune system disorder [Recovered/Resolved]
  - Neutrophil count decreased [Unknown]

NARRATIVE: CASE EVENT DATE: 20220301
